FAERS Safety Report 18251365 (Version 7)
Quarter: 2022Q4

REPORT INFORMATION
  Report Type: Spontaneous
  Country: JP (occurrence: JP)
  Receive Date: 20200910
  Receipt Date: 20221128
  Transmission Date: 20230113
  Serious: Yes (Death, Disabling, Other)
  Sender: FDA-Public Use
  Company Number: NVSJ2020JP008525

PATIENT
  Age: 87 Year
  Sex: Male

DRUGS (2)
  1. BEOVU [Suspect]
     Active Substance: BROLUCIZUMAB-DBLL
     Indication: Age-related macular degeneration
     Dosage: 6 MG
     Route: 031
     Dates: start: 20200729, end: 20200729
  2. WARFARIN [Concomitant]
     Active Substance: WARFARIN
     Indication: Product used for unknown indication
     Dosage: UNK
     Route: 048

REACTIONS (11)
  - Myocardial infarction [Fatal]
  - Retinal vasculitis [Not Recovered/Not Resolved]
  - Blindness transient [Recovering/Resolving]
  - Retinal artery occlusion [Not Recovered/Not Resolved]
  - Retinal haemorrhage [Unknown]
  - Anterior chamber inflammation [Recovering/Resolving]
  - Vitreous opacities [Recovered/Resolved]
  - Keratic precipitates [Unknown]
  - Vision blurred [Unknown]
  - Vitreous floaters [Unknown]
  - Anterior chamber cell [Unknown]

NARRATIVE: CASE EVENT DATE: 20200902
